FAERS Safety Report 14126772 (Version 2)
Quarter: 2017Q4

REPORT INFORMATION
  Report Type: Spontaneous
  Country: US (occurrence: US)
  Receive Date: 20171025
  Receipt Date: 20171222
  Transmission Date: 20180321
  Serious: Yes (Other)
  Sender: FDA-Public Use
  Company Number: US-ASTRAZENECA-2017SF07716

PATIENT
  Sex: Male
  Weight: 50.8 kg

DRUGS (2)
  1. SYMBICORT [Suspect]
     Active Substance: BUDESONIDE\FORMOTEROL FUMARATE DIHYDRATE
     Indication: CHRONIC OBSTRUCTIVE PULMONARY DISEASE
     Dosage: 80/4.UG, 2 PUFFS ,TWO TIMES A DAY
     Route: 055
  2. SYMBICORT [Suspect]
     Active Substance: BUDESONIDE\FORMOTEROL FUMARATE DIHYDRATE
     Indication: EMPHYSEMA
     Dosage: 80/4.UG, 2 PUFFS ,TWO TIMES A DAY
     Route: 055

REACTIONS (6)
  - Back pain [Unknown]
  - Off label use [Unknown]
  - Intentional product misuse [Unknown]
  - Device issue [Unknown]
  - Back disorder [Unknown]
  - Product use in unapproved indication [Unknown]
